FAERS Safety Report 12572443 (Version 1)
Quarter: 2016Q3

REPORT INFORMATION
  Report Type: Spontaneous
  Country: US (occurrence: US)
  Receive Date: 20160719
  Receipt Date: 20160719
  Transmission Date: 20161109
  Serious: No
  Sender: FDA-Public Use
  Company Number: US-ASTRAZENECA-2016SE64565

PATIENT
  Age: 73 Year
  Sex: Female
  Weight: 68 kg

DRUGS (9)
  1. SEROQUEL XR [Suspect]
     Active Substance: QUETIAPINE FUMARATE
     Indication: ANXIETY
     Dosage: AT NIGHT
     Route: 048
     Dates: end: 20160426
  2. SYNTHROID [Concomitant]
     Active Substance: LEVOTHYROXINE SODIUM
     Indication: THYROID DISORDER
     Route: 048
  3. WELLBUTRIN XCL [Concomitant]
     Indication: ANXIETY
     Route: 048
  4. LEXAPRO [Concomitant]
     Active Substance: ESCITALOPRAM OXALATE
     Indication: ANXIETY
     Route: 048
  5. SEROQUEL XR [Suspect]
     Active Substance: QUETIAPINE FUMARATE
     Indication: AMNESIA
     Dosage: AT NIGHT
     Route: 048
     Dates: end: 20160426
  6. WELLBUTRIN XCL [Concomitant]
     Indication: DEPRESSION
     Route: 048
  7. LEXAPRO [Concomitant]
     Active Substance: ESCITALOPRAM OXALATE
     Indication: DEPRESSION
     Route: 048
  8. LORAZEPAM. [Concomitant]
     Active Substance: LORAZEPAM
     Indication: ANXIETY
     Dosage: 1.0MG UNKNOWN
     Route: 048
  9. SEROQUEL XR [Suspect]
     Active Substance: QUETIAPINE FUMARATE
     Indication: DEPRESSION
     Dosage: AT NIGHT
     Route: 048
     Dates: end: 20160426

REACTIONS (26)
  - Myalgia [Unknown]
  - Weight increased [Unknown]
  - Asthenia [Unknown]
  - Feeling cold [Unknown]
  - Chills [Unknown]
  - Eyelid pain [Unknown]
  - Stomatitis [Unknown]
  - Dysphagia [Unknown]
  - Urticaria [Unknown]
  - Lip ulceration [Unknown]
  - Mouth ulceration [Unknown]
  - Pyrexia [Unknown]
  - Cough [Unknown]
  - Rash [Unknown]
  - Cheilitis [Unknown]
  - Fatigue [Unknown]
  - Product use issue [Unknown]
  - Tooth loss [Unknown]
  - Oropharyngeal pain [Unknown]
  - Vision blurred [Unknown]
  - Hyperhidrosis [Unknown]
  - Skin discolouration [Unknown]
  - Tooth infection [Unknown]
  - Restlessness [Unknown]
  - Off label use [Unknown]
  - Pruritus [Unknown]

NARRATIVE: CASE EVENT DATE: 2016
